FAERS Safety Report 24904062 (Version 1)
Quarter: 2025Q1

REPORT INFORMATION
  Report Type: Spontaneous
  Country: US (occurrence: US)
  Receive Date: 20250130
  Receipt Date: 20250130
  Transmission Date: 20250409
  Serious: Yes (Hospitalization)
  Sender: STRIDES
  Company Number: US-STRIDES ARCOLAB LIMITED-2024SP015726

PATIENT
  Age: 39 Year
  Sex: Male

DRUGS (13)
  1. OXYBUTYNIN [Suspect]
     Active Substance: OXYBUTYNIN
     Indication: Cystitis interstitial
     Route: 065
  2. OXYBUTYNIN [Suspect]
     Active Substance: OXYBUTYNIN
     Indication: Haematuria
  3. OXYBUTYNIN [Suspect]
     Active Substance: OXYBUTYNIN
     Indication: Pyuria
  4. FESOTERODINE [Suspect]
     Active Substance: FESOTERODINE
     Indication: Cystitis interstitial
     Route: 065
  5. FESOTERODINE [Suspect]
     Active Substance: FESOTERODINE
     Indication: Haematuria
  6. FESOTERODINE [Suspect]
     Active Substance: FESOTERODINE
     Indication: Pyuria
  7. TROSPIUM CHLORIDE [Suspect]
     Active Substance: TROSPIUM CHLORIDE
     Indication: Cystitis interstitial
     Route: 065
  8. TROSPIUM CHLORIDE [Suspect]
     Active Substance: TROSPIUM CHLORIDE
     Indication: Haematuria
  9. TROSPIUM CHLORIDE [Suspect]
     Active Substance: TROSPIUM CHLORIDE
     Indication: Pyuria
  10. MIRABEGRON [Suspect]
     Active Substance: MIRABEGRON
     Indication: Cystitis interstitial
     Route: 065
  11. MIRABEGRON [Suspect]
     Active Substance: MIRABEGRON
     Indication: Haematuria
  12. MIRABEGRON [Suspect]
     Active Substance: MIRABEGRON
     Indication: Pyuria
  13. KETAMINE [Concomitant]
     Active Substance: KETAMINE
     Indication: Product used for unknown indication
     Route: 065

REACTIONS (1)
  - Drug ineffective for unapproved indication [Unknown]
